FAERS Safety Report 10264643 (Version 3)
Quarter: 2015Q4

REPORT INFORMATION
  Report Type: Report from Study
  Country: DE (occurrence: DE)
  Receive Date: 20140627
  Receipt Date: 20151007
  Transmission Date: 20160304
  Serious: Yes (Death, Hospitalization, Other)
  Sender: FDA-Public Use
  Company Number: PHHY2013DE100979

PATIENT
  Sex: Female
  Weight: 66.3 kg

DRUGS (2)
  1. EXJADE [Suspect]
     Active Substance: DEFERASIROX
     Indication: MYELODYSPLASTIC SYNDROME
     Dosage: 500 MG, QD (PER DAY)
     Route: 048
     Dates: start: 20130628
  2. EXJADE [Suspect]
     Active Substance: DEFERASIROX
     Indication: SERUM FERRITIN INCREASED
     Dosage: 1000 MG
     Route: 048

REACTIONS (4)
  - Myelodysplastic syndrome transformation [Unknown]
  - Creatinine renal clearance decreased [Recovered/Resolved]
  - Acute myeloid leukaemia [Fatal]
  - Malignant neoplasm progression [Unknown]

NARRATIVE: CASE EVENT DATE: 20130903
